FAERS Safety Report 13818795 (Version 2)
Quarter: 2017Q4

REPORT INFORMATION
  Report Type: Spontaneous
  Country: US (occurrence: US)
  Receive Date: 20170801
  Receipt Date: 20171027
  Transmission Date: 20180320
  Serious: Yes (Hospitalization, Other)
  Sender: FDA-Public Use
  Company Number: US-ROCHE-1971306

PATIENT
  Age: 51 Year
  Sex: Female

DRUGS (2)
  1. OCREVUS [Suspect]
     Active Substance: OCRELIZUMAB
     Indication: PRODUCT USED FOR UNKNOWN INDICATION
     Route: 065
     Dates: start: 20170501
  2. OCREVUS [Suspect]
     Active Substance: OCRELIZUMAB
     Route: 065
     Dates: start: 20170515

REACTIONS (5)
  - Herpes zoster cutaneous disseminated [Unknown]
  - Confusional state [Recovered/Resolved]
  - Encephalopathy [Recovered/Resolved]
  - Repetitive speech [Recovered/Resolved]
  - Aphasia [Recovered/Resolved]

NARRATIVE: CASE EVENT DATE: 20170709
